FAERS Safety Report 9500072 (Version 2)
Quarter: 2013Q4

REPORT INFORMATION
  Report Type: Report from Study
  Country: AR (occurrence: AR)
  Receive Date: 20130905
  Receipt Date: 20131108
  Transmission Date: 20140711
  Serious: Yes (Death, Hospitalization, Other)
  Sender: FDA-Public Use
  Company Number: PHHY2013AR096788

PATIENT
  Sex: Male

DRUGS (1)
  1. EXFORGE [Suspect]
     Dosage: UNK (160/5MG), UKN
     Route: 048

REACTIONS (4)
  - Neoplasm [Fatal]
  - Feeling abnormal [Not Recovered/Not Resolved]
  - Pneumonia [Unknown]
  - Renal failure [Unknown]
